FAERS Safety Report 18824952 (Version 1)
Quarter: 2021Q1

REPORT INFORMATION
  Report Type: Spontaneous
  Country: US (occurrence: US)
  Receive Date: 20210202
  Receipt Date: 20210202
  Transmission Date: 20210419
  Serious: No
  Sender: FDA-Public Use
  Company Number: US-PFIZER INC-2020472897

PATIENT
  Age: 70 Year
  Sex: Female
  Weight: 62.6 kg

DRUGS (1)
  1. IBRANCE [Suspect]
     Active Substance: PALBOCICLIB
     Indication: LUNG NEOPLASM MALIGNANT
     Dosage: 125 MG, CYCLIC (125MG PILL ONCE A DAY BY MOUTH FOR 21 DAYS AND THEN OFF 7 DAYS)
     Route: 048

REACTIONS (4)
  - Off label use [Unknown]
  - Product storage error [Unknown]
  - Depressed mood [Unknown]
  - Nasopharyngitis [Unknown]
